FAERS Safety Report 20741975 (Version 1)
Quarter: 2022Q2

REPORT INFORMATION
  Report Type: Spontaneous
  Country: US (occurrence: US)
  Receive Date: 20220423
  Receipt Date: 20220423
  Transmission Date: 20220721
  Serious: No
  Sender: FDA-Public Use
  Company Number: US-BRISTOL-MYERS SQUIBB COMPANY-USA-20220304601

PATIENT
  Age: 81 Year
  Sex: Female

DRUGS (1)
  1. POMALYST [Suspect]
     Active Substance: POMALIDOMIDE
     Indication: Product used for unknown indication
     Dosage: 4 MILLIGRAM, DAILY
     Route: 048
     Dates: start: 202202

REACTIONS (2)
  - Rash pruritic [Unknown]
  - Chills [Unknown]

NARRATIVE: CASE EVENT DATE: 20220315
